FAERS Safety Report 8791696 (Version 1)
Quarter: 2012Q4

REPORT INFORMATION
  Report Type: 
  Country: ES (occurrence: ES)
  Receive Date: 20120918
  Receipt Date: 20120918
  Transmission Date: 20130627
  Serious: Yes (Other)
  Sender: FDA-Public Use
  Company Number: ES-009507513-1003ESP00037B1

PATIENT
  Age: 0 Year
  Sex: Female
  Weight: 1.47 kg

DRUGS (6)
  1. ISENTRESS [Suspect]
     Indication: HIV INFECTION
     Dosage: 400 mg, bid
     Route: 064
     Dates: start: 20100301
  2. PREZISTA [Suspect]
     Indication: HIV INFECTION
     Dosage: 1200 mg, qd
     Route: 064
     Dates: start: 20100301
  3. NORVIR [Suspect]
     Indication: HIV INFECTION
     Route: 064
     Dates: start: 20100301
  4. COMBIVIR [Suspect]
     Indication: HIV INFECTION
     Route: 064
     Dates: start: 20100301
  5. TRUVADA [Suspect]
  6. CORTICOSTEROIDS (UNSPECIFIED) [Concomitant]
     Indication: MATERNAL THERAPY TO ENHANCE FOETAL LUNG MATURITY
     Route: 064
     Dates: start: 20100824, end: 20100826

REACTIONS (3)
  - Low birth weight baby [Recovered/Resolved]
  - Foetal exposure during pregnancy [Recovered/Resolved]
  - Premature baby [Recovered/Resolved]
